FAERS Safety Report 24183853 (Version 4)
Quarter: 2024Q4

REPORT INFORMATION
  Report Type: Spontaneous
  Country: US (occurrence: US)
  Receive Date: 20240807
  Receipt Date: 20241203
  Transmission Date: 20250115
  Serious: No
  Sender: PFIZER
  Company Number: US-PFIZER INC-202400227228

PATIENT
  Age: 8 Year
  Sex: Male
  Weight: 21.45 kg

DRUGS (1)
  1. GENOTROPIN [Suspect]
     Active Substance: SOMATROPIN
     Indication: Small for dates baby
     Dosage: 1.2 MG, DAILY
     Route: 058
     Dates: start: 2019

REACTIONS (3)
  - Device breakage [Unknown]
  - Device use issue [Unknown]
  - Drug dose omission by device [Unknown]
